FAERS Safety Report 8270909-X (Version None)
Quarter: 2012Q2

REPORT INFORMATION
  Report Type: 
  Country: None (occurrence: None)
  Receive Date: 20120410
  Receipt Date: 20120330
  Transmission Date: 20120825
  Serious: Yes (Hospitalization, Other)
  Sender: FDA-Public Use
  Company Number: JP-PFIZER INC-2012087396

PATIENT
  Age: 91 Year
  Sex: Male

DRUGS (8)
  1. CELEBREX [Suspect]
     Dosage: 200 MG DAILY
     Route: 048
     Dates: end: 20120323
  2. LANSOPRAZOLE [Concomitant]
     Dosage: UNK
     Route: 048
  3. DIAZEPAM [Concomitant]
     Dosage: UNK
     Route: 048
  4. URSO 250 [Concomitant]
     Dosage: UNK
     Route: 048
  5. TRANDOLAPRIL [Concomitant]
     Dosage: UNK
     Route: 048
  6. AMLODIPINE [Concomitant]
     Dosage: UNK
  7. SIGMART [Concomitant]
     Dosage: UNK
     Route: 048
  8. DIOVAN [Concomitant]
     Dosage: UNK
     Route: 048

REACTIONS (1)
  - GRANULOCYTOPENIA [None]
